FAERS Safety Report 10159502 (Version 3)
Quarter: 2015Q1

REPORT INFORMATION
  Report Type: Spontaneous
  Country: GB (occurrence: GB)
  Receive Date: 20140508
  Receipt Date: 20140508
  Transmission Date: 20150720
  Serious: Yes (Other)
  Sender: FDA-Public Use
  Company Number: GB-MYLANLABS-2014S1009775

PATIENT
  Sex: Male

DRUGS (5)
  1. CLOPIDOGREL [Suspect]
     Active Substance: CLOPIDOGREL BISULFATE
  2. ATORVASTATIN [Suspect]
     Active Substance: ATORVASTATIN
  3. BISOPROLOL [Suspect]
     Active Substance: BISOPROLOL
  4. ASPIRIN. [Suspect]
     Active Substance: ASPIRIN
  5. RAMIPRIL. [Concomitant]
     Active Substance: RAMIPRIL

REACTIONS (2)
  - Sensitivity of teeth [Unknown]
  - Toothache [Unknown]
